FAERS Safety Report 12711750 (Version 2)
Quarter: 2016Q3

REPORT INFORMATION
  Report Type: Spontaneous
  Country: IT (occurrence: IT)
  Receive Date: 20160902
  Receipt Date: 20160913
  Transmission Date: 20161109
  Serious: Yes (Other)
  Sender: FDA-Public Use
  Company Number: IT-ROCHE-1824298

PATIENT
  Age: 56 Year
  Sex: Male

DRUGS (24)
  1. ZOLOFT [Interacting]
     Active Substance: SERTRALINE HYDROCHLORIDE
     Indication: DEPRESSION
     Route: 048
     Dates: start: 20160501, end: 20160816
  2. CYMBALTA [Concomitant]
     Active Substance: DULOXETINE HYDROCHLORIDE
     Indication: PHOBIA
     Dosage: PERIOD OF ADMINISTRATION:3 YEARS
     Route: 065
  3. XENICAL [Suspect]
     Active Substance: ORLISTAT
     Indication: OBESITY
     Dosage: HARD CAPSULE
     Route: 048
     Dates: start: 20160401, end: 20160816
  4. ZYLORIC [Concomitant]
     Active Substance: ALLOPURINOL
     Dosage: PERIOD OF ADMINISTRATION:6 YEARS
     Route: 065
  5. ESAPENT [Concomitant]
     Dosage: PERIOD OF ADMINISTRATION:6 YEARS
     Route: 048
  6. VICTOZA [Concomitant]
     Active Substance: LIRAGLUTIDE
     Indication: DIABETES MELLITUS
     Dosage: PERIOD OF ADMINISTRATION:9 MONTHS
     Route: 058
  7. COAPROVEL [Concomitant]
     Active Substance: HYDROCHLOROTHIAZIDE\IRBESARTAN
     Indication: HYPERTENSION
     Dosage: 25 MG TAB ; PERIOD OF ADMINISTRATION:7 MONTHS
     Route: 048
  8. TACHIPIRINA [Concomitant]
     Active Substance: ACETAMINOPHEN
     Dosage: PERIOD OF ADMINISTRATION:9 MONTHS
     Route: 065
  9. LARGACTIL [Concomitant]
     Active Substance: CHLORPROMAZINE
     Indication: PHOBIA
     Dosage: PERIOD OF ADMINISTRATION:6 MONTHS
     Route: 065
  10. LASIX [Concomitant]
     Active Substance: FUROSEMIDE
     Dosage: PERIOD OF ADMINISTRATION:8 YEARS
     Route: 048
  11. NORVASC [Concomitant]
     Active Substance: AMLODIPINE BESYLATE
     Dosage: PERIOD OF ADMINISTRATION:6 MONTHS
     Route: 065
  12. CARNITENE [Concomitant]
     Dosage: PERIOD OF ADMINISTRATION:3 YEARS
     Route: 065
  13. XATRAL [Concomitant]
     Active Substance: ALFUZOSIN
     Dosage: PERIOD OF ADMINISTRATION:7 YEARS
     Route: 065
  14. CIALIS [Concomitant]
     Active Substance: TADALAFIL
     Dosage: PERIOD OF ADMINISTRATION:3 YEARS
     Route: 065
  15. LYRICA [Concomitant]
     Active Substance: PREGABALIN
     Dosage: PERIOD OF ADMINISTRATION:4 YEARS
     Route: 065
  16. EN [Concomitant]
     Active Substance: DELORAZEPAM
     Indication: PHOBIA
     Dosage: PERIOD OF ADMINISTRATION:6 MONTHS
     Route: 065
  17. EVION [Concomitant]
     Active Substance: .ALPHA.-TOCOPHEROL ACETATE
     Dosage: PERIOD OF ADMINISTRATION:7 YEARS
     Route: 065
  18. ABSORCOL [Concomitant]
     Dosage: PERIOD OF ADMINISTRATION:7 YEARS
     Route: 065
  19. COUMADIN [Interacting]
     Active Substance: WARFARIN SODIUM
     Indication: THROMBOSIS PROPHYLAXIS
     Route: 048
     Dates: start: 20090101
  20. RIBOFLAVIN SODIUM PHOSPHATE [Concomitant]
     Dosage: PERIOD OF ADMINISTRATION:7 MONTHS
     Route: 065
  21. NICOTINAMIDE [Concomitant]
     Active Substance: NIACINAMIDE
     Dosage: PERIOD OF ADMINISTRATION:2 YEARS
     Route: 065
  22. OMEPRAZOLE. [Concomitant]
     Active Substance: OMEPRAZOLE
     Dosage: PERIOD OF ADMINISTRATION:7 YEARS
     Route: 065
  23. PREFOLIC [Concomitant]
     Active Substance: LEUCOVORIN CALCIUM
     Dosage: PERIOD OF ADMINISTRATION:7 YEARS
     Route: 065
  24. ACTOS [Concomitant]
     Active Substance: PIOGLITAZONE HYDROCHLORIDE
     Dosage: PERIOD OF ADMINISTRATION:6 MONTHS
     Route: 048

REACTIONS (2)
  - Drug interaction [Unknown]
  - International normalised ratio increased [Recovered/Resolved]

NARRATIVE: CASE EVENT DATE: 20160810
